FAERS Safety Report 19520627 (Version 1)
Quarter: 2021Q3

REPORT INFORMATION
  Report Type: Spontaneous
  Country: MY (occurrence: MY)
  Receive Date: 20210712
  Receipt Date: 20210712
  Transmission Date: 20211014
  Serious: Yes (Other)
  Sender: FDA-Public Use
  Company Number: MY-SUN PHARMACEUTICAL INDUSTRIES LTD-2021R1-303853

PATIENT
  Age: 56 Year
  Sex: Male

DRUGS (1)
  1. STORVAS C [Suspect]
     Active Substance: ATORVASTATIN CALCIUM
     Indication: HYPERLIPIDAEMIA
     Dosage: 40 MILLIGRAM, DAILY
     Route: 048

REACTIONS (4)
  - Chest discomfort [Not Recovered/Not Resolved]
  - Skin hypertrophy [Not Recovered/Not Resolved]
  - Dry throat [Not Recovered/Not Resolved]
  - Pain [Not Recovered/Not Resolved]
